FAERS Safety Report 7124547-2 (Version None)
Quarter: 2010Q4

REPORT INFORMATION
  Report Type: 
  Country: None (occurrence: None)
  Receive Date: 20101128
  Receipt Date: 20101118
  Transmission Date: 20110411
  Serious: Yes (Death, Hospitalization)
  Sender: FDA-Public Use
  Company Number: AR-BRISTOL-MYERS SQUIBB COMPANY-14977235

PATIENT
  Age: 63 Year
  Sex: Male
  Weight: 115 kg

DRUGS (8)
  1. CETUXIMAB [Suspect]
     Indication: NON-SMALL CELL LUNG CANCER
     Dosage: 5MG/ML; DRUG WITHDRAWN ON 04FEB2010
     Route: 042
     Dates: start: 20100204, end: 20100204
  2. CARBOPLATIN [Suspect]
     Indication: NON-SMALL CELL LUNG CANCER
     Dosage: 1DF=6AUC (ON DAY 1 OF 21 DAY CYCLE); DRUG WITHDRAWN ON 04FEB2010
     Route: 042
     Dates: start: 20100204, end: 20100204
  3. PACLITAXEL [Suspect]
     Indication: NON-SMALL CELL LUNG CANCER
     Dosage: ON DAY 1 OF 21 DAY CYCLE; DRUG WITHDRAWN ON 04FEB2010
     Route: 042
     Dates: start: 20100204, end: 20100204
  4. ATENOLOL [Concomitant]
     Route: 048
     Dates: start: 20040101
  5. LOSARTAN [Concomitant]
     Route: 048
     Dates: start: 20040101
  6. AMIODARONE [Concomitant]
     Route: 048
     Dates: start: 20040101
  7. IBUPROFEN [Concomitant]
     Route: 048
     Dates: start: 20091201
  8. METFORMIN HCL [Concomitant]
     Route: 048
     Dates: start: 20060901

REACTIONS (1)
  - MULTI-ORGAN FAILURE [None]
